FAERS Safety Report 8169789-2 (Version None)
Quarter: 2012Q1

REPORT INFORMATION
  Report Type: 
  Country: None (occurrence: None)
  Receive Date: 20120228
  Receipt Date: 20120222
  Transmission Date: 20120608
  Serious: Yes (Death, Hospitalization, Other)
  Sender: FDA-Public Use
  Company Number: FR-ABBOTT-12P-056-0907483-00

PATIENT
  Sex: Male

DRUGS (15)
  1. MIRTAZAPINE [Concomitant]
     Indication: PRODUCT USED FOR UNKNOWN INDICATION
     Route: 048
     Dates: end: 20120105
  2. XANAX [Concomitant]
     Indication: PRODUCT USED FOR UNKNOWN INDICATION
     Dosage: 1/2 TABLET A DAY
     Dates: end: 20120105
  3. PREDNISONE TAB [Concomitant]
     Indication: PRODUCT USED FOR UNKNOWN INDICATION
     Dates: end: 20120105
  4. AMINOPHYLLINE [Suspect]
     Indication: PRODUCT USED FOR UNKNOWN INDICATION
     Route: 048
     Dates: end: 20120105
  5. FLUTICASONE PROPIONATE/SALMETEROL [Suspect]
     Indication: PRODUCT USED FOR UNKNOWN INDICATION
     Route: 055
     Dates: end: 20120105
  6. LANSOPRAZOLE [Concomitant]
     Indication: PRODUCT USED FOR UNKNOWN INDICATION
     Dates: end: 20120105
  7. TRANDOLAPRIL [Suspect]
     Indication: PRODUCT USED FOR UNKNOWN INDICATION
     Route: 048
     Dates: end: 20120105
  8. IMMUNE GLOBULIN (HUMAN) [Suspect]
     Indication: PRODUCT USED FOR UNKNOWN INDICATION
     Route: 042
     Dates: end: 20111228
  9. CALCIDOSE VITAMINE D [Concomitant]
     Indication: PRODUCT USED FOR UNKNOWN INDICATION
     Dates: end: 20120105
  10. ATROVENT [Suspect]
     Indication: PRODUCT USED FOR UNKNOWN INDICATION
     Route: 055
     Dates: end: 20120105
  11. BRICANYL [Concomitant]
     Indication: PRODUCT USED FOR UNKNOWN INDICATION
     Dates: end: 20120105
  12. GAVISCON [Concomitant]
     Indication: PRODUCT USED FOR UNKNOWN INDICATION
     Dates: end: 20120105
  13. DESLORATADINE [Concomitant]
     Indication: PRODUCT USED FOR UNKNOWN INDICATION
     Dates: end: 20120105
  14. POTASSIUM CHLORIDE [Concomitant]
     Indication: PRODUCT USED FOR UNKNOWN INDICATION
     Dosage: 1 DF IN THE AM, 2 DF IN THE PM
     Dates: end: 20120105
  15. FOLIC ACID [Concomitant]
     Indication: PRODUCT USED FOR UNKNOWN INDICATION
     Dates: end: 20120105

REACTIONS (28)
  - CONFUSIONAL STATE [None]
  - DEATH [None]
  - DIARRHOEA [None]
  - TACHYPNOEA [None]
  - UNEVALUABLE EVENT [None]
  - HYPOVOLAEMIA [None]
  - HYPOTENSION [None]
  - TACHYARRHYTHMIA [None]
  - ASTHENIA [None]
  - RESPIRATORY DEPRESSION [None]
  - MULTI-ORGAN FAILURE [None]
  - STREPTOCOCCAL SEPSIS [None]
  - OVERDOSE [None]
  - METABOLIC ACIDOSIS [None]
  - POLYURIA [None]
  - HYPERGLYCAEMIA [None]
  - BRADYPNOEA [None]
  - LIVEDO RETICULARIS [None]
  - SKIN NECROSIS [None]
  - ATRIAL FIBRILLATION [None]
  - RENAL FAILURE [None]
  - DEHYDRATION [None]
  - USE OF ACCESSORY RESPIRATORY MUSCLES [None]
  - DECREASED APPETITE [None]
  - VOMITING [None]
  - DEPRESSED LEVEL OF CONSCIOUSNESS [None]
  - CONVULSION [None]
  - GASTROENTERITIS [None]
